FAERS Safety Report 15917393 (Version 2)
Quarter: 2019Q1

REPORT INFORMATION
  Report Type: Spontaneous
  Country: FR (occurrence: FR)
  Receive Date: 20190205
  Receipt Date: 20190215
  Transmission Date: 20190417
  Serious: Yes (Hospitalization)
  Sender: FDA-Public Use
  Company Number: FR-ACCORD-105223

PATIENT
  Age: 66 Year
  Sex: Female

DRUGS (2)
  1. FOLINIC ACID [Suspect]
     Active Substance: LEUCOVORIN
     Indication: SQUAMOUS CELL CARCINOMA
     Route: 042
     Dates: start: 20180403, end: 20180404
  2. FLUOROURACIL. [Suspect]
     Active Substance: FLUOROURACIL
     Indication: SQUAMOUS CELL CARCINOMA
     Route: 042
     Dates: start: 20180403, end: 20180404

REACTIONS (2)
  - Laryngeal oedema [Recovered/Resolved]
  - Acute respiratory distress syndrome [Recovered/Resolved]

NARRATIVE: CASE EVENT DATE: 20180405
